FAERS Safety Report 6929031-4 (Version None)
Quarter: 2010Q3

REPORT INFORMATION
  Report Type: 
  Country: None (occurrence: None)
  Receive Date: 20100817
  Receipt Date: 20100707
  Transmission Date: 20110219
  Serious: Yes (Life-Threatening, Other)
  Sender: FDA-Public Use
  Company Number: US-BAXTER-2010BH003732

PATIENT
  Age: 37 Year
  Sex: Male
  Weight: 79 kg

DRUGS (25)
  1. HEPARIN SODIUM INJECTION [Suspect]
     Indication: HAEMODIALYSIS
     Route: 042
     Dates: start: 20071001, end: 20080201
  2. HEPARIN SODIUM INJECTION [Suspect]
     Indication: PERITONEAL DIALYSIS
     Route: 042
     Dates: start: 20071001, end: 20080201
  3. HEPARIN SODIUM INJECTION [Suspect]
     Route: 042
     Dates: start: 20071001, end: 20080201
  4. HEPARIN SODIUM INJECTION [Suspect]
     Route: 042
     Dates: start: 20071001, end: 20080201
  5. HEPARIN SODIUM INJECTION [Suspect]
     Route: 042
     Dates: start: 20071001, end: 20080201
  6. HEPARIN SODIUM INJECTION [Suspect]
     Route: 042
     Dates: start: 20071001, end: 20080201
  7. HEPARIN SODIUM INJECTION [Suspect]
     Route: 033
     Dates: start: 20071001, end: 20080201
  8. HEPARIN SODIUM INJECTION [Suspect]
     Route: 033
     Dates: start: 20071001, end: 20080201
  9. HEPARIN SODIUM INJECTION [Suspect]
     Route: 065
     Dates: start: 20070501
  10. HEPARIN SODIUM INJECTION [Suspect]
     Route: 065
     Dates: start: 20070501
  11. HEPARIN SODIUM INJECTION [Suspect]
     Route: 033
     Dates: start: 20071001, end: 20080201
  12. HEPARIN SODIUM INJECTION [Suspect]
     Route: 033
     Dates: start: 20071001, end: 20080201
  13. HEPARIN SODIUM INJECTION [Suspect]
     Route: 033
     Dates: start: 20071001, end: 20080201
  14. HEPARIN SODIUM INJECTION [Suspect]
     Route: 033
     Dates: start: 20071001, end: 20080201
  15. CONTRAST MEDIA [Concomitant]
     Indication: PRODUCT USED FOR UNKNOWN INDICATION
     Route: 065
  16. PREDNISONE [Concomitant]
     Indication: PRODUCT USED FOR UNKNOWN INDICATION
     Route: 065
  17. MINOXIDIL [Concomitant]
     Indication: PRODUCT USED FOR UNKNOWN INDICATION
     Route: 065
  18. VITAMIN B-COMPLEX WITH VITAMIN C [Concomitant]
     Indication: PRODUCT USED FOR UNKNOWN INDICATION
     Route: 065
  19. REGLAN [Concomitant]
     Indication: PRODUCT USED FOR UNKNOWN INDICATION
     Route: 065
  20. LEVAQUIN [Concomitant]
     Indication: PRODUCT USED FOR UNKNOWN INDICATION
     Route: 065
  21. DILAUDID [Concomitant]
     Indication: PRODUCT USED FOR UNKNOWN INDICATION
     Route: 065
  22. FUROSEMIDE [Concomitant]
     Indication: PRODUCT USED FOR UNKNOWN INDICATION
     Route: 065
  23. ALLOPURINOL [Concomitant]
     Indication: PRODUCT USED FOR UNKNOWN INDICATION
     Route: 065
  24. IRON [Concomitant]
     Indication: DIALYSIS
     Route: 065
  25. NOVEL ERYTHROPOIESIS STIMULATING PROTEIN [Concomitant]
     Indication: DIALYSIS
     Route: 065

REACTIONS (20)
  - ABASIA [None]
  - ABDOMINAL PAIN [None]
  - ARRHYTHMIA [None]
  - ATRIAL FIBRILLATION [None]
  - BACTERAEMIA [None]
  - CARDIAC VALVE DISEASE [None]
  - HEADACHE [None]
  - HYPERTENSION [None]
  - HYPOAESTHESIA [None]
  - HYPOTONIA [None]
  - PERITONITIS [None]
  - PULMONARY EMBOLISM [None]
  - RESTLESSNESS [None]
  - SKIN DISCOLOURATION [None]
  - SPINAL CORD INFECTION [None]
  - THIRST [None]
  - THROMBOCYTOPENIA [None]
  - UNRESPONSIVE TO STIMULI [None]
  - VOMITING [None]
  - WEIGHT DECREASED [None]
